FAERS Safety Report 9398764 (Version 2)
Quarter: 2013Q3

REPORT INFORMATION
  Report Type: Spontaneous
  Country: US (occurrence: US)
  Receive Date: 20130712
  Receipt Date: 20130719
  Transmission Date: 20140515
  Serious: Yes (Other)
  Sender: FDA-Public Use
  Company Number: CHPA2013US010987

PATIENT
  Age: 46 Year
  Sex: Female

DRUGS (3)
  1. PERDIEM OVERNIGHT RELIEF PILLS [Suspect]
     Indication: PROPHYLAXIS
     Dosage: 2 DF, QHS
     Route: 048
     Dates: end: 201307
  2. PERDIEM OVERNIGHT RELIEF PILLS [Suspect]
     Indication: CONSTIPATION
     Dosage: 2 DF, BID
     Route: 048
  3. PERDIEM FIBER [Suspect]
     Dosage: UNK, UNK
     Route: 048

REACTIONS (5)
  - Mastocytosis [Not Recovered/Not Resolved]
  - Diarrhoea [Not Recovered/Not Resolved]
  - Malabsorption [Unknown]
  - Vitamin D deficiency [Recovering/Resolving]
  - Constipation [Not Recovered/Not Resolved]
